FAERS Safety Report 23758178 (Version 4)
Quarter: 2024Q2

REPORT INFORMATION
  Report Type: Spontaneous
  Country: US (occurrence: None)
  Receive Date: 20240418
  Receipt Date: 20240521
  Transmission Date: 20240716
  Serious: Yes (Life-Threatening, Hospitalization, Other)
  Sender: FDA-Public Use
  Company Number: 2024A086565

PATIENT
  Age: 23902 Day
  Sex: Female
  Weight: 42.6 kg

DRUGS (25)
  1. TRUQAP [Suspect]
     Active Substance: CAPIVASERTIB
     Indication: Breast cancer metastatic
     Route: 048
     Dates: start: 20240125, end: 20240128
  2. FULVESTRANT [Suspect]
     Active Substance: FULVESTRANT
     Route: 030
     Dates: start: 20210819, end: 20231130
  3. FULVESTRANT [Suspect]
     Active Substance: FULVESTRANT
     Dosage: 500.0MG UNKNOWN
     Route: 030
     Dates: start: 20240125, end: 20240130
  4. CETIRIZINE HYDROCHLORIDE [Concomitant]
     Active Substance: CETIRIZINE HYDROCHLORIDE
  5. PROCLORPERAZINE [Concomitant]
  6. BETAMETHASONE [Concomitant]
     Active Substance: BETAMETHASONE\BETAMETHASONE DIPROPIONATE
  7. TRAMADOL [Concomitant]
     Active Substance: TRAMADOL\TRAMADOL HYDROCHLORIDE
  8. MAGNEIUSM [Concomitant]
  9. IBUPROFEN [Concomitant]
     Active Substance: IBUPROFEN
  10. ACETAMINOPHEN [Concomitant]
     Active Substance: ACETAMINOPHEN
  11. LEVOTHYROXINE [Concomitant]
     Active Substance: LEVOTHYROXINE\LEVOTHYROXINE SODIUM
  12. CALCIUM CARBONATE [Concomitant]
     Active Substance: CALCIUM CARBONATE
  13. LATANOPROST [Concomitant]
     Active Substance: LATANOPROST
  14. FAMOTIDINE [Concomitant]
     Active Substance: FAMOTIDINE
  15. AMANTADINE [Concomitant]
     Active Substance: AMANTADINE
  16. DEXAMETHASONE [Concomitant]
     Active Substance: DEXAMETHASONE
     Route: 048
  17. PROCHLORPERAZINE [Concomitant]
     Active Substance: PROCHLORPERAZINE
  18. BETAMETHASONE [Concomitant]
     Active Substance: BETAMETHASONE\BETAMETHASONE DIPROPIONATE
  19. TRAMADOL [Concomitant]
     Active Substance: TRAMADOL\TRAMADOL HYDROCHLORIDE
  20. MAGNESIUM OXIDE [Concomitant]
     Active Substance: MAGNESIUM OXIDE
  21. LEVOTHYROXINE [Concomitant]
     Active Substance: LEVOTHYROXINE\LEVOTHYROXINE SODIUM
  22. TUMS [Concomitant]
     Active Substance: CALCIUM CARBONATE
  23. VITAMIN D [Concomitant]
     Active Substance: VITAMIN D NOS
  24. METFORMIN [Concomitant]
     Active Substance: METFORMIN HYDROCHLORIDE
     Indication: Hyperglycaemia
     Dosage: 100.0MG UNKNOWN
     Route: 048
     Dates: start: 20240125, end: 20240130
  25. INSULIN NOS [Concomitant]
     Active Substance: INSULIN NOS
     Indication: Hyperglycaemia
     Dosage: UNKNOWN
     Route: 042
     Dates: start: 20240125, end: 20240128

REACTIONS (28)
  - Hyperglycaemic hyperosmolar nonketotic syndrome [Recovered/Resolved]
  - Euglycaemic diabetic ketoacidosis [Unknown]
  - Thrombocytopenia [Unknown]
  - Metastases to bone [Unknown]
  - Acute kidney injury [Unknown]
  - Blood pressure systolic increased [Unknown]
  - Mean arterial pressure increased [Unknown]
  - Hyperglycaemia [Recovered/Resolved]
  - Metastases to liver [Unknown]
  - Blood bilirubin increased [Unknown]
  - Liver injury [Unknown]
  - Nausea [Unknown]
  - Malaise [Unknown]
  - Vomiting [Unknown]
  - Diarrhoea [Unknown]
  - Abdominal pain [Unknown]
  - Confusional state [Unknown]
  - Asthenia [Unknown]
  - Liver function test increased [Unknown]
  - Heart rate increased [Unknown]
  - Anaemia [Unknown]
  - Hypertransaminasaemia [Unknown]
  - Hypokalaemia [Recovered/Resolved]
  - Effusion [Unknown]
  - Hypophagia [Unknown]
  - Condition aggravated [Unknown]
  - General physical health deterioration [Unknown]
  - Hyperkalaemia [Unknown]

NARRATIVE: CASE EVENT DATE: 20240128
